FAERS Safety Report 9091195 (Version 1)
Quarter: 2013Q1

REPORT INFORMATION
  Report Type: Spontaneous
  Country: US (occurrence: US)
  Receive Date: 20130201
  Receipt Date: 20130201
  Transmission Date: 20140127
  Serious: No
  Sender: FDA-Public Use
  Company Number: US-ABBOTT-12P-163-1019071-00

PATIENT
  Sex: Male
  Weight: 71.73 kg

DRUGS (7)
  1. HUMIRA [Suspect]
     Indication: RHEUMATOID ARTHRITIS
  2. METHOTREXATE [Concomitant]
     Indication: RHEUMATOID ARTHRITIS
  3. FOLIC ACID [Concomitant]
     Indication: PRODUCT USED FOR UNKNOWN INDICATION
  4. ETODOLAC [Concomitant]
     Indication: RHEUMATOID ARTHRITIS
  5. BUSPAR [Concomitant]
     Indication: NERVOUSNESS
  6. OMEPRAZOLE [Concomitant]
     Indication: GASTROOESOPHAGEAL REFLUX DISEASE
  7. TEGRETOL [Concomitant]
     Indication: GRAND MAL CONVULSION

REACTIONS (2)
  - Injection site bruising [Not Recovered/Not Resolved]
  - Incorrect dose administered [Not Recovered/Not Resolved]
